FAERS Safety Report 8877515 (Version 1)
Quarter: 2012Q4

REPORT INFORMATION
  Report Type: Spontaneous
  Country: FR (occurrence: None)
  Receive Date: 20121025
  Receipt Date: 20121025
  Transmission Date: 20130627
  Serious: Yes (Hospitalization)
  Sender: FDA-Public Use
  Company Number: 2012CP000136

PATIENT
  Age: 56 Year
  Sex: Female

DRUGS (2)
  1. PERFALGAN [Suspect]
     Indication: PNEUMONIA
     Route: 042
     Dates: start: 20120925
  2. AUGMENTIN [Suspect]
     Route: 042
     Dates: start: 20120925

REACTIONS (2)
  - Circulatory collapse [None]
  - Hypersensitivity [None]
